FAERS Safety Report 8792853 (Version 2)
Quarter: 2012Q4

REPORT INFORMATION
  Report Type: 
  Country: US (occurrence: US)
  Receive Date: 20120918
  Receipt Date: 20121010
  Transmission Date: 20130627
  Serious: Yes (Death, Hospitalization)
  Sender: FDA-Public Use
  Company Number: US-BAXTER-2012BAX017117

PATIENT
  Age: 56 Year
  Sex: Male

DRUGS (2)
  1. DIANEAL LOW CALCIUM [Suspect]
     Indication: PERITONEAL DIALYSIS
     Route: 033
     Dates: end: 20120926
  2. DIANEAL LOW CALCIUM [Suspect]
     Indication: PERITONEAL DIALYSIS
     Route: 033
     Dates: end: 20120926

REACTIONS (7)
  - Pulmonary thrombosis [Fatal]
  - Thrombosis [Fatal]
  - Cardiac failure [Fatal]
  - Respiratory failure [Fatal]
  - Cerebrovascular accident [Fatal]
  - Pneumonia [Fatal]
  - Anaemia [Not Recovered/Not Resolved]
